FAERS Safety Report 13433323 (Version 1)
Quarter: 2017Q2

REPORT INFORMATION
  Report Type: Report from Study
  Country: None (occurrence: JP)
  Receive Date: 20170412
  Receipt Date: 20170412
  Transmission Date: 20170830
  Serious: Yes (Other)
  Sender: FDA-Public Use
  Company Number: JP-ABBVIE-15P-087-1351409-00

PATIENT
  Age: 4 Year
  Sex: Female

DRUGS (45)
  1. TOBI [Suspect]
     Active Substance: TOBRAMYCIN
     Dosage: DAILY DOSE: 2 AMPOULE; SCHEDULED FOR DISCONTINUATION
     Route: 055
     Dates: start: 20150108, end: 20150204
  2. TOBI [Suspect]
     Active Substance: TOBRAMYCIN
     Route: 055
     Dates: start: 20140206, end: 20140305
  3. TOBI [Suspect]
     Active Substance: TOBRAMYCIN
     Route: 055
     Dates: start: 20140724, end: 20140820
  4. TOBI [Suspect]
     Active Substance: TOBRAMYCIN
     Route: 055
     Dates: start: 20150108, end: 20150204
  5. TOBI [Suspect]
     Active Substance: TOBRAMYCIN
     Route: 055
     Dates: start: 20151210, end: 20160105
  6. TOBI [Suspect]
     Active Substance: TOBRAMYCIN
     Route: 055
     Dates: start: 20160331, end: 20160427
  7. TOBI [Suspect]
     Active Substance: TOBRAMYCIN
     Route: 055
     Dates: start: 20160721, end: 20160817
  8. LIPACREON [Suspect]
     Active Substance: PANCRELIPASE
     Indication: PANCREATIC FAILURE
     Route: 048
     Dates: start: 20131212, end: 20160117
  9. TOBI [Suspect]
     Active Substance: TOBRAMYCIN
     Route: 065
     Dates: start: 20150820, end: 20150916
  10. TOBI [Suspect]
     Active Substance: TOBRAMYCIN
     Route: 055
     Dates: start: 20140529, end: 20140625
  11. TOBI [Suspect]
     Active Substance: TOBRAMYCIN
     Route: 055
     Dates: start: 20150625, end: 20150722
  12. TOBI [Suspect]
     Active Substance: TOBRAMYCIN
     Route: 055
     Dates: start: 20150820, end: 20150916
  13. TOBI [Suspect]
     Active Substance: TOBRAMYCIN
     Route: 055
     Dates: start: 20151015, end: 20151111
  14. BACTRAMIN [Concomitant]
     Active Substance: SULFAMETHOXAZOLE\TRIMETHOPRIM
     Indication: ILL-DEFINED DISORDER
     Route: 048
     Dates: end: 20151013
  15. PROCATEROL HYDROCHLORIDE [Concomitant]
     Active Substance: PROCATEROL HYDROCHLORIDE
     Indication: CYSTIC FIBROSIS PANCREATIC
     Route: 055
  16. TOBI [Suspect]
     Active Substance: TOBRAMYCIN
     Route: 055
     Dates: start: 20140403, end: 20140430
  17. TOBI [Suspect]
     Active Substance: TOBRAMYCIN
     Route: 055
     Dates: start: 20160915, end: 20161012
  18. LIPACREON [Suspect]
     Active Substance: PANCRELIPASE
     Route: 048
     Dates: start: 20160118
  19. TOBI [Suspect]
     Active Substance: TOBRAMYCIN
     Route: 065
     Dates: start: 20150430, end: 20150527
  20. TOBI [Suspect]
     Active Substance: TOBRAMYCIN
     Route: 065
     Dates: start: 20151210, end: 20160105
  21. TOBI [Suspect]
     Active Substance: TOBRAMYCIN
     Route: 055
     Dates: start: 20141113, end: 20141210
  22. TOBI [Suspect]
     Active Substance: TOBRAMYCIN
     Route: 055
     Dates: start: 20150430, end: 20150527
  23. TOBI [Suspect]
     Active Substance: TOBRAMYCIN
     Route: 055
     Dates: start: 20140918, end: 20141015
  24. TOBI [Suspect]
     Active Substance: TOBRAMYCIN
     Route: 065
     Dates: start: 20151015, end: 20151111
  25. TOBI [Suspect]
     Active Substance: TOBRAMYCIN
     Route: 055
     Dates: start: 20161110, end: 20161207
  26. BACTRAMIN [Concomitant]
     Active Substance: SULFAMETHOXAZOLE\TRIMETHOPRIM
     Route: 048
     Dates: start: 20151014, end: 20160117
  27. TOBI [Suspect]
     Active Substance: TOBRAMYCIN
     Route: 055
     Dates: start: 20140206, end: 20140305
  28. TOBI [Suspect]
     Active Substance: TOBRAMYCIN
     Route: 065
     Dates: start: 20150305, end: 20150401
  29. TOBI [Suspect]
     Active Substance: TOBRAMYCIN
     Route: 055
     Dates: start: 20140403, end: 20140430
  30. TOBI [Suspect]
     Active Substance: TOBRAMYCIN
     Route: 055
     Dates: start: 20160204, end: 20160302
  31. MONTELUKAST SODIUM. [Concomitant]
     Active Substance: MONTELUKAST SODIUM
     Indication: ASTHMA
     Route: 048
  32. DORNASE ALFA [Suspect]
     Active Substance: DORNASE ALFA
     Indication: CYSTIC FIBROSIS PANCREATIC
     Route: 055
     Dates: start: 20131212
  33. TOBI [Suspect]
     Active Substance: TOBRAMYCIN
     Indication: CYSTIC FIBROSIS PANCREATIC
     Route: 055
     Dates: start: 20131212, end: 20140108
  34. TOBI [Suspect]
     Active Substance: TOBRAMYCIN
     Route: 055
     Dates: start: 20140529, end: 20140625
  35. TOBI [Suspect]
     Active Substance: TOBRAMYCIN
     Route: 055
     Dates: start: 20140724, end: 20140820
  36. TOBI [Suspect]
     Active Substance: TOBRAMYCIN
     Route: 055
     Dates: start: 20141113, end: 20141210
  37. TOBI [Suspect]
     Active Substance: TOBRAMYCIN
     Route: 065
     Dates: start: 20150625, end: 20150722
  38. TOBI [Suspect]
     Active Substance: TOBRAMYCIN
     Route: 055
     Dates: start: 20140918, end: 20141015
  39. TOBI [Suspect]
     Active Substance: TOBRAMYCIN
     Route: 055
     Dates: start: 20150305, end: 20150401
  40. MUCODYNE [Concomitant]
     Active Substance: CARBOCYSTEINE
     Indication: CYSTIC FIBROSIS PANCREATIC
     Route: 048
     Dates: end: 20151208
  41. KLARICID [Concomitant]
     Active Substance: CLARITHROMYCIN
     Indication: ILL-DEFINED DISORDER
     Route: 048
     Dates: end: 20151208
  42. INTAL [Concomitant]
     Active Substance: CROMOLYN SODIUM
     Indication: ASTHMA
     Route: 055
  43. TOBI [Suspect]
     Active Substance: TOBRAMYCIN
     Route: 055
     Dates: start: 20160526, end: 20160622
  44. AMBROXOL HYDROCHLORIDE [Concomitant]
     Active Substance: AMBROXOL HYDROCHLORIDE
     Indication: CYSTIC FIBROSIS PANCREATIC
     Route: 048
  45. KLARICID [Concomitant]
     Active Substance: CLARITHROMYCIN
     Dates: start: 20151209, end: 20160412

REACTIONS (2)
  - Dysphonia [Not Recovered/Not Resolved]
  - Renal tubular disorder [Not Recovered/Not Resolved]

NARRATIVE: CASE EVENT DATE: 20141030
